FAERS Safety Report 5958857-9 (Version None)
Quarter: 2008Q4

REPORT INFORMATION
  Report Type: 
  Country: None (occurrence: None)
  Receive Date: 20081119
  Receipt Date: 20081112
  Transmission Date: 20090506
  Serious: Yes (Other)
  Sender: FDA-Public Use
  Company Number: AT-AMGEN-UK316549

PATIENT
  Sex: Male
  Weight: 81 kg

DRUGS (6)
  1. VECTIBIX [Suspect]
     Indication: DRUG USE FOR UNKNOWN INDICATION
     Route: 041
     Dates: start: 20080801
  2. UNSPECIFIED ANTINEOPLASTIC AGENT [Concomitant]
  3. METHIMAZOLE [Concomitant]
     Route: 048
  4. LEVOTHYROXINE SODIUM [Concomitant]
     Route: 048
  5. DIPHENHYDRAMINE HYDROCHLORIDE [Concomitant]
     Route: 041
  6. SODIUM CHLORIDE 0.9% [Concomitant]
     Route: 041

REACTIONS (4)
  - BACK PAIN [None]
  - CHEST DISCOMFORT [None]
  - HYPERSENSITIVITY [None]
  - RASH [None]
